FAERS Safety Report 8032725-3 (Version None)
Quarter: 2012Q1

REPORT INFORMATION
  Report Type: 
  Country: None (occurrence: None)
  Receive Date: 20120110
  Receipt Date: 20111228
  Transmission Date: 20120608
  Serious: Yes (Hospitalization)
  Sender: FDA-Public Use
  Company Number: US-RANBAXY-2011US-51549

PATIENT
  Sex: Male

DRUGS (1)
  1. IBUPROFEN [Suspect]
     Indication: PRODUCT USED FOR UNKNOWN INDICATION
     Dosage: SINGLE 400 MG TABLET
     Route: 048

REACTIONS (5)
  - PYREXIA [None]
  - MENINGITIS ASEPTIC [None]
  - PHOTOPHOBIA [None]
  - RASH ERYTHEMATOUS [None]
  - HEADACHE [None]
